FAERS Safety Report 11120374 (Version 3)
Quarter: 2015Q2

REPORT INFORMATION
  Report Type: Spontaneous
  Country: US (occurrence: US)
  Receive Date: 20150518
  Receipt Date: 20150610
  Transmission Date: 20150821
  Serious: Yes (Other)
  Sender: FDA-Public Use
  Company Number: US-PFIZER INC-2015163704

PATIENT
  Age: 88 Year
  Sex: Female

DRUGS (1)
  1. REVATIO [Suspect]
     Active Substance: SILDENAFIL CITRATE
     Indication: POOR PERIPHERAL CIRCULATION
     Dosage: 20 MG, 3X/DAY
     Dates: start: 20141101

REACTIONS (3)
  - Vision blurred [Not Recovered/Not Resolved]
  - Hearing impaired [Not Recovered/Not Resolved]
  - Product use issue [Not Recovered/Not Resolved]

NARRATIVE: CASE EVENT DATE: 20141101
